FAERS Safety Report 4936195-0 (Version None)
Quarter: 2006Q1

REPORT INFORMATION
  Report Type: 
  Country: None (occurrence: None)
  Receive Date: 20060307
  Receipt Date: 20051201
  Transmission Date: 20060701
  Serious: No
  Sender: FDA-Public Use
  Company Number: US-GLAXOSMITHKLINE-A0584286A

PATIENT
  Age: 58 Year
  Sex: Female

DRUGS (13)
  1. REQUIP [Suspect]
     Indication: RESTLESS LEGS SYNDROME
     Dosage: 5MG PER DAY
     Route: 048
     Dates: start: 20050915, end: 20051110
  2. AMITRIPTYLINE HCL [Concomitant]
  3. FUROSEMIDE [Concomitant]
  4. ZOLOFT [Concomitant]
  5. LIPITOR [Concomitant]
  6. WARFARIN SODIUM [Concomitant]
  7. BONIVA [Concomitant]
  8. TRILEPTAL [Concomitant]
  9. NEXIUM [Concomitant]
  10. POTASSIUM [Concomitant]
  11. HUMULIN [Concomitant]
  12. CALCITRIOL [Concomitant]
  13. CLONIDINE [Concomitant]

REACTIONS (4)
  - DIZZINESS [None]
  - MUSCLE SPASMS [None]
  - SOMNOLENCE [None]
  - TREMOR [None]
